FAERS Safety Report 24800086 (Version 1)
Quarter: 2025Q1

REPORT INFORMATION
  Report Type: Spontaneous
  Country: US (occurrence: US)
  Receive Date: 20250102
  Receipt Date: 20250102
  Transmission Date: 20250409
  Serious: No
  Sender: PIRAMAL
  Company Number: US-PCCINC-2024-PPL-000966

PATIENT

DRUGS (1)
  1. SEVOFLURANE [Suspect]
     Active Substance: SEVOFLURANE
     Indication: Product used for unknown indication

REACTIONS (1)
  - Accidental exposure to product [Unknown]
